FAERS Safety Report 9282416 (Version 1)
Quarter: 2013Q2

REPORT INFORMATION
  Report Type: Spontaneous
  Country: US (occurrence: US)
  Receive Date: 20130510
  Receipt Date: 20130510
  Transmission Date: 20140414
  Serious: Yes (Other)
  Sender: FDA-Public Use
  Company Number: US-JNJFOC-20130500159

PATIENT
  Age: 75 Year
  Sex: Female
  Weight: 48.54 kg

DRUGS (3)
  1. REMICADE [Suspect]
     Indication: RHEUMATOID ARTHRITIS
     Route: 042
     Dates: end: 20130116
  2. REMICADE [Suspect]
     Indication: RHEUMATOID ARTHRITIS
     Route: 042
     Dates: start: 20071219
  3. MEDROL DOSE PACK [Concomitant]
     Route: 065

REACTIONS (1)
  - Non-Hodgkin^s lymphoma [Not Recovered/Not Resolved]
